FAERS Safety Report 6745757-X (Version None)
Quarter: 2010Q2

REPORT INFORMATION
  Report Type: 
  Country: None (occurrence: None)
  Receive Date: 20100528
  Receipt Date: 20100518
  Transmission Date: 20101027
  Serious: Yes (Other)
  Sender: FDA-Public Use
  Company Number: PHHY2010US24993

PATIENT
  Sex: Female
  Weight: 87.528 kg

DRUGS (16)
  1. RECLAST [Suspect]
     Indication: OSTEOPOROSIS
     Dosage: 5 MG, YEARLY
     Route: 042
     Dates: start: 20090428
  2. MAGNESIUM [Concomitant]
     Dosage: 400 MG, BID
  3. AMLODIPINE [Concomitant]
     Dosage: 5 MG, QD
  4. PROTONIX [Concomitant]
     Dosage: 40 MG, QD
  5. BENICAR [Concomitant]
     Dosage: 40 MG, QD
  6. KLOR-CON [Concomitant]
     Dosage: 10 MG, BID
  7. CALCIUM CARBONATE [Concomitant]
     Dosage: 600 MG, UNK
  8. VITAMIN D [Concomitant]
     Dosage: 3 TIMES A DAY
  9. ASPIRIN [Concomitant]
     Dosage: 81 MG, BID
  10. FISH OIL [Concomitant]
     Dosage: 1000 MG, QD
  11. GLUCOSAMINE [Concomitant]
     Dosage: 1500 MG, BID
  12. CHONDROITIN A [Concomitant]
     Dosage: 1200 MG, BID
  13. MULTI-VITAMINS [Concomitant]
     Dosage: ONCE A DAY
  14. NEURONTIN [Concomitant]
     Dosage: 30 MG, QD
  15. PREDNISONE [Concomitant]
     Dosage: 9 MG, QD
  16. TYLENOL (CAPLET) [Concomitant]
     Dosage: 650 MG, TWICE EVERY 6 HOURS

REACTIONS (5)
  - FATIGUE [None]
  - INFLUENZA LIKE ILLNESS [None]
  - MUSCULOSKELETAL PAIN [None]
  - PAIN IN EXTREMITY [None]
  - POLYMYALGIA RHEUMATICA [None]
